FAERS Safety Report 12917420 (Version 13)
Quarter: 2020Q2

REPORT INFORMATION
  Report Type: Report from Study
  Country: US (occurrence: US)
  Receive Date: 20161107
  Receipt Date: 20200528
  Transmission Date: 20200713
  Serious: Yes (Hospitalization)
  Sender: FDA-Public Use
  Company Number: US-ACTELION-A-US2016-133870

PATIENT
  Age: 46 Year
  Sex: Female
  Weight: 56.69 kg

DRUGS (7)
  1. LETAIRIS [Concomitant]
     Active Substance: AMBRISENTAN
  2. VELETRI [Suspect]
     Active Substance: EPOPROSTENOL
     Indication: PULMONARY ARTERIAL HYPERTENSION
     Dosage: 48.3 NG/KG, PER MIN
     Route: 042
  3. VELETRI [Suspect]
     Active Substance: EPOPROSTENOL
     Dosage: 47 NG/KG, PER MIN
     Route: 042
  4. COUMADIN [Concomitant]
     Active Substance: WARFARIN SODIUM
  5. VELETRI [Suspect]
     Active Substance: EPOPROSTENOL
     Dosage: 45 NG/KG, PER MIN
     Route: 042
  6. VELETRI [Suspect]
     Active Substance: EPOPROSTENOL
     Dosage: 51.1 NG/KG, PER MIN
     Route: 042
     Dates: start: 20120802
  7. VELETRI [Suspect]
     Active Substance: EPOPROSTENOL
     Dosage: 45.7 NG/KG, PER MIN
     Route: 042

REACTIONS (23)
  - Skin infection [Unknown]
  - Catheter site cellulitis [Unknown]
  - Catheter site swelling [Unknown]
  - Pain in jaw [Unknown]
  - Device leakage [Unknown]
  - Headache [Unknown]
  - Malaise [Unknown]
  - Catheter site haematoma [Unknown]
  - Catheter site pain [Unknown]
  - Sinusitis [Unknown]
  - Asthenia [Unknown]
  - Device malfunction [Unknown]
  - Diarrhoea [Unknown]
  - Catheter site erythema [Unknown]
  - Device alarm issue [Unknown]
  - Catheter management [Unknown]
  - Nausea [Unknown]
  - Thrombosis [Unknown]
  - Dyspnoea [Not Recovered/Not Resolved]
  - Dyspnoea exertional [Not Recovered/Not Resolved]
  - Hospitalisation [Not Recovered/Not Resolved]
  - Wound treatment [Unknown]
  - Vomiting [Unknown]

NARRATIVE: CASE EVENT DATE: 20181118
